FAERS Safety Report 17577400 (Version 2)
Quarter: 2020Q1

REPORT INFORMATION
  Report Type: Spontaneous
  Country: GB (occurrence: GB)
  Receive Date: 20200324
  Receipt Date: 20200327
  Transmission Date: 20200409
  Serious: Yes (Hospitalization)
  Sender: FDA-Public Use
  Company Number: GB-TEVA-2020-GB-1208611

PATIENT
  Age: 91 Year
  Sex: Male

DRUGS (11)
  1. BISOPROLOL [Concomitant]
     Active Substance: BISOPROLOL
     Dosage: 2.5 MG
  2. SALBUTAMOL [Concomitant]
     Active Substance: ALBUTEROL
  3. SITAGLIPTIN [Concomitant]
     Active Substance: SITAGLIPTIN
     Dosage: 100 MG
  4. LISINOPRIL. [Suspect]
     Active Substance: LISINOPRIL
     Dosage: 15 MG
     Route: 065
  5. OMEPRAZOLE. [Concomitant]
     Active Substance: OMEPRAZOLE
     Dosage: 20 MG
  6. AMLODIPINE [Concomitant]
     Active Substance: AMLODIPINE BESYLATE
     Dosage: 5 MG
  7. DOXAZOSIN [Concomitant]
     Active Substance: DOXAZOSIN MESYLATE
     Dosage: 1 MG
  8. INDAPAMIDE. [Concomitant]
     Active Substance: INDAPAMIDE
     Dosage: EACH MORNING 1.5 MG
  9. METFORMIN [Concomitant]
     Active Substance: METFORMIN HYDROCHLORIDE
     Dosage: WITH BREAKFAST 2 GM
  10. EVACAL D3 CHEWABLE [Concomitant]
     Dosage: 1500MG/400UNIT 2 DOSAGE FORMS
  11. ATORVASTATIN [Concomitant]
     Active Substance: ATORVASTATIN
     Dosage: 10 MG

REACTIONS (4)
  - Lethargy [Unknown]
  - Dyspnoea [Unknown]
  - Hyperkalaemia [Recovered/Resolved]
  - Acute kidney injury [Recovered/Resolved]
